FAERS Safety Report 20845470 (Version 1)
Quarter: 2022Q2

REPORT INFORMATION
  Report Type: Spontaneous
  Country: DE (occurrence: DE)
  Receive Date: 20220518
  Receipt Date: 20220518
  Transmission Date: 20220721
  Serious: Yes (Disabling, Other)
  Sender: FDA-Public Use
  Company Number: None

PATIENT
  Age: 11 Year
  Sex: Female
  Weight: 50 kg

DRUGS (1)
  1. CYTOTEC [Suspect]
     Active Substance: MISOPROSTOL
     Indication: Labour induction
     Dosage: 1 TABLET
     Route: 064
     Dates: start: 20101116, end: 20101116

REACTIONS (9)
  - Epilepsy [Unknown]
  - Autism spectrum disorder [Unknown]
  - Developmental delay [Unknown]
  - Hyperacusis [Unknown]
  - Illusion [Unknown]
  - Foetal exposure during pregnancy [Unknown]
  - Pituitary tumour benign [Unknown]
  - Attention deficit hyperactivity disorder [Unknown]
  - Arachnoid cyst [Unknown]
